FAERS Safety Report 19514954 (Version 1)
Quarter: 2021Q3

REPORT INFORMATION
  Report Type: Spontaneous
  Country: US (occurrence: US)
  Receive Date: 20210709
  Receipt Date: 20210709
  Transmission Date: 20211014
  Serious: Yes (Other)
  Sender: FDA-Public Use
  Company Number: US-BAUSCH-BL-2021-020809

PATIENT
  Age: 84 Year
  Weight: 67.65 kg

DRUGS (2)
  1. CARDIZEM CD [Suspect]
     Active Substance: DILTIAZEM HYDROCHLORIDE
     Route: 065
     Dates: start: 201507, end: 20210408
  2. CARDIZEM CD [Suspect]
     Active Substance: DILTIAZEM HYDROCHLORIDE
     Indication: ATRIAL FIBRILLATION
     Dosage: STARTED AROUND 5 TO 6 YEARS AGO
     Route: 065

REACTIONS (14)
  - Visual impairment [Unknown]
  - Dizziness [Recovered/Resolved]
  - Dyspepsia [Recovering/Resolving]
  - Facial pain [Recovered/Resolved]
  - Dry mouth [Recovering/Resolving]
  - Ill-defined disorder [Unknown]
  - Alopecia [Recovering/Resolving]
  - Skin cancer [Unknown]
  - Eye pain [Recovered/Resolved]
  - Dry throat [Recovered/Resolved]
  - Skin disorder [Unknown]
  - Headache [Recovered/Resolved]
  - Dry eye [Recovered/Resolved]
  - Bone pain [Recovered/Resolved]

NARRATIVE: CASE EVENT DATE: 201911
